FAERS Safety Report 8334409-0 (Version None)
Quarter: 2012Q2

REPORT INFORMATION
  Report Type: 
  Country: None (occurrence: None)
  Receive Date: 20120503
  Receipt Date: 20110609
  Transmission Date: 20120825
  Serious: No
  Sender: FDA-Public Use
  Company Number: US-TEVA-2011001378

PATIENT
  Sex: Female
  Weight: 68.1 kg

DRUGS (3)
  1. PROZAC [Concomitant]
     Dates: start: 20030101
  2. NUVIGIL [Suspect]
     Indication: HYPERSOMNIA
     Dosage: 150 MILLIGRAM;
     Route: 048
     Dates: start: 20110226, end: 20110227
  3. GENERIC ALLEGRA [Concomitant]
     Dates: start: 20100101

REACTIONS (3)
  - VOMITING [None]
  - ASTHENIA [None]
  - NAUSEA [None]
